FAERS Safety Report 5371391-2 (Version None)
Quarter: 2007Q2

REPORT INFORMATION
  Report Type: 
  Country: None (occurrence: None)
  Receive Date: 20070615
  Receipt Date: 20060607
  Transmission Date: 20071010
  Serious: Yes (Other)
  Sender: FDA-Public Use
  Company Number: 200614082US

PATIENT
  Age: 27 Year
  Sex: Male

DRUGS (3)
  1. LANTUS [Suspect]
     Indication: DIABETES MELLITUS NON-INSULIN-DEPENDENT
  2. OPTICLIK [Suspect]
     Indication: DIABETES MELLITUS NON-INSULIN-DEPENDENT
     Dates: start: 20060301
  3. INSULIN (HUMALOG /00030501/) [Concomitant]

REACTIONS (2)
  - HYPERGLYCAEMIA [None]
  - INJECTION SITE EXTRAVASATION [None]
